FAERS Safety Report 6990220-4 (Version None)
Quarter: 2010Q3

REPORT INFORMATION
  Report Type: 
  Country: None (occurrence: None)
  Receive Date: 20100916
  Receipt Date: 20100518
  Transmission Date: 20110219
  Serious: Yes (Other)
  Sender: FDA-Public Use
  Company Number: FR-PFIZER INC-2010038901

PATIENT
  Sex: Female
  Weight: 95 kg

DRUGS (5)
  1. LYRICA [Suspect]
     Indication: DIABETIC NEUROPATHY
     Dosage: 75 MG, (2 INTAKES IN THE MORNING, 2 INTAKES AT NOON, 1 INTAKE IN THE EVENING)
     Dates: start: 20100202, end: 20100218
  2. LANTUS [Concomitant]
     Dosage: UNK
     Route: 058
     Dates: start: 20100125
  3. IRBESARTAN [Concomitant]
     Dosage: 4 MG, UNK
     Dates: start: 20060101
  4. VOLTAREN [Concomitant]
     Dosage: 75 MG, UNK
     Dates: start: 20100208
  5. ACETAMINOPHEN [Concomitant]
     Dosage: UNK
     Dates: start: 20100208

REACTIONS (3)
  - CREATININE RENAL CLEARANCE DECREASED [None]
  - OEDEMA [None]
  - WEIGHT INCREASED [None]
